FAERS Safety Report 8191950-1 (Version None)
Quarter: 2012Q1

REPORT INFORMATION
  Report Type: 
  Country: None (occurrence: None)
  Receive Date: 20120302
  Receipt Date: 20120227
  Transmission Date: 20120608
  Serious: No
  Sender: FDA-Public Use
  Company Number: US-PFIZER INC-2012025843

PATIENT
  Age: 83 Year
  Sex: Female

DRUGS (1)
  1. XALATAN [Suspect]
     Dosage: BOTH EYES ONCE DAILY AT BEDTIME
     Route: 047

REACTIONS (3)
  - OSTEOARTHRITIS [None]
  - OSTEOPOROSIS [None]
  - DEPRESSION [None]
